FAERS Safety Report 6941781-2 (Version None)
Quarter: 2010Q3

REPORT INFORMATION
  Report Type: 
  Country: None (occurrence: None)
  Receive Date: 20100826
  Receipt Date: 20100820
  Transmission Date: 20110219
  Serious: Yes (Hospitalization)
  Sender: FDA-Public Use
  Company Number: US-BIOGENIDEC-2010BI028702

PATIENT
  Age: 44 Year
  Sex: Female

DRUGS (6)
  1. AVONEX [Suspect]
     Indication: MULTIPLE SCLEROSIS
     Route: 030
     Dates: start: 20080404, end: 20100601
  2. TOPAMAX [Concomitant]
     Indication: MIGRAINE
  3. TRILEPTAL [Concomitant]
     Indication: TRIGEMINAL NEURALGIA
     Dates: start: 20060101
  4. WELLBUTRIN [Concomitant]
     Indication: DEPRESSION
     Dates: start: 20010101
  5. SALAGEN [Concomitant]
     Indication: DRY MOUTH
  6. RITALIN [Concomitant]
     Indication: FATIGUE

REACTIONS (2)
  - DRUG INEFFECTIVE [None]
  - MULTIPLE SCLEROSIS RELAPSE [None]
